FAERS Safety Report 7439507-1 (Version None)
Quarter: 2011Q2

REPORT INFORMATION
  Report Type: 
  Country: None (occurrence: None)
  Receive Date: 20110427
  Receipt Date: 20110418
  Transmission Date: 20111010
  Serious: Yes (Other)
  Sender: FDA-Public Use
  Company Number: IT-JNJFOC-20110408278

PATIENT
  Sex: Female

DRUGS (4)
  1. LANSOPRAZOLE [Concomitant]
     Route: 048
  2. COUMADIN [Suspect]
     Indication: PULMONARY INFARCTION
     Route: 048
  3. PEVARYL [Suspect]
     Indication: FUNGAL INFECTION
     Route: 067
  4. COUMADIN [Suspect]
     Indication: PULMONARY EMBOLISM
     Route: 048

REACTIONS (1)
  - INTERNATIONAL NORMALISED RATIO INCREASED [None]
